FAERS Safety Report 5910620-0 (Version None)
Quarter: 2008Q4

REPORT INFORMATION
  Report Type: 
  Country: None (occurrence: None)
  Receive Date: 20081007
  Receipt Date: 20080926
  Transmission Date: 20090506
  Serious: Yes (Death, Other)
  Sender: FDA-Public Use
  Company Number: JP-NOVOPROD-279492

PATIENT
  Age: 79 Year
  Sex: Male
  Weight: 56 kg

DRUGS (7)
  1. NOVOSEVEN [Suspect]
     Indication: ACQUIRED HAEMOPHILIA
     Dosage: 4.8 MG, 3 DOSES
     Route: 042
     Dates: start: 20080911, end: 20080911
  2. NOVOSEVEN [Suspect]
     Dosage: 4.8 MG, 2 DOSES
     Route: 042
     Dates: start: 20080912, end: 20080912
  3. ADVATE                             /00286701/ [Concomitant]
     Indication: HAEMORRHAGE
     Dosage: 5000 U, UNK
     Dates: start: 20080910, end: 20080910
  4. TIENAM [Concomitant]
     Indication: CHOLELITHIASIS
     Dosage: 1 G, QD  FOR 3 DAYS
     Dates: start: 20080830
  5. TIENAM [Concomitant]
     Indication: CHOLECYSTITIS
  6. VENOGLOBULIN                       /00025201/ [Concomitant]
     Indication: CHOLELITHIASIS
     Dates: start: 20080830
  7. VENOGLOBULIN                       /00025201/ [Concomitant]
     Indication: CHOLECYSTITIS

REACTIONS (9)
  - ASCITES [None]
  - DYSPNOEA [None]
  - GASTROINTESTINAL DISORDER [None]
  - GASTROINTESTINAL OEDEMA [None]
  - HAEMOTHORAX [None]
  - MESENTERIC ARTERY EMBOLISM [None]
  - PLEURAL EFFUSION [None]
  - SHOCK [None]
  - VENOUS STENOSIS [None]
